FAERS Safety Report 23067509 (Version 3)
Quarter: 2023Q4

REPORT INFORMATION
  Report Type: Spontaneous
  Country: BR (occurrence: BR)
  Receive Date: 20231016
  Receipt Date: 20231030
  Transmission Date: 20240110
  Serious: Yes (Other)
  Sender: FDA-Public Use
  Company Number: BR-NOVOPROD-1125020

PATIENT
  Sex: Female
  Weight: 96 kg

DRUGS (2)
  1. OZEMPIC [Suspect]
     Active Substance: SEMAGLUTIDE
     Indication: Obesity
     Dosage: 0.25 MG(1 APPLICATION)
  2. OZEMPIC [Suspect]
     Active Substance: SEMAGLUTIDE
     Indication: Glucose tolerance impaired
     Dosage: 0.5 MG(2 APPLICATION)

REACTIONS (9)
  - Partial seizures [Unknown]
  - Headache [Unknown]
  - Tremor [Unknown]
  - Increased appetite [Unknown]
  - Memory impairment [Unknown]
  - Swelling [Unknown]
  - Constipation [Unknown]
  - Off label use [Unknown]
  - Inappropriate schedule of product administration [Unknown]
